FAERS Safety Report 17015807 (Version 3)
Quarter: 2019Q4

REPORT INFORMATION
  Report Type: Spontaneous
  Country: JP (occurrence: JP)
  Receive Date: 20191111
  Receipt Date: 20191126
  Transmission Date: 20200122
  Serious: Yes (Death, Other)
  Sender: FDA-Public Use
  Company Number: JP-ELI_LILLY_AND_COMPANY-JP201911003297

PATIENT
  Age: 50 Year
  Sex: Male

DRUGS (2)
  1. ERBITUX [Suspect]
     Active Substance: CETUXIMAB
     Indication: BONE CANCER
     Dosage: 250 MG/M2, WEEKLY (1/W)
     Route: 041
     Dates: start: 20161031, end: 20161205
  2. PACLITAXEL. [Concomitant]
     Active Substance: PACLITAXEL
     Indication: BONE CANCER
     Dosage: 100 MG/M2, WEEKLY (1/W)
     Route: 041
     Dates: start: 20161031, end: 20161205

REACTIONS (4)
  - Pain [Unknown]
  - Malignant neoplasm progression [Fatal]
  - Off label use [Unknown]
  - General physical health deterioration [Unknown]

NARRATIVE: CASE EVENT DATE: 2017
